FAERS Safety Report 6884732-1 (Version None)
Quarter: 2010Q3

REPORT INFORMATION
  Report Type: 
  Country: None (occurrence: None)
  Receive Date: 20100729
  Receipt Date: 20070824
  Transmission Date: 20110219
  Serious: Yes (Hospitalization, Other)
  Sender: FDA-Public Use
  Company Number: US-PFIZER INC-2007063450

PATIENT
  Sex: Female

DRUGS (4)
  1. CELEBREX [Suspect]
     Indication: PAIN MANAGEMENT
     Dates: start: 19981201
  2. CELEBREX [Suspect]
     Indication: ARTHRITIS
  3. CELEBREX [Suspect]
     Indication: MUSCULOSKELETAL PAIN
  4. CELEBREX [Suspect]
     Indication: PAIN IN EXTREMITY

REACTIONS (2)
  - MYOCARDIAL INFARCTION [None]
  - NERVOUSNESS [None]
